FAERS Safety Report 6832393 (Version 25)
Quarter: 2012Q4

REPORT INFORMATION
  Report Type: 
  Country: CA (occurrence: CA)
  Receive Date: 20081204
  Receipt Date: 20121106
  Transmission Date: 20130627
  Serious: Yes (Hospitalization, Other)
  Sender: FDA-Public Use
  Company Number: PHHY2008CA30093

PATIENT
  Sex: Male

DRUGS (1)
  1. ZOMETA [Suspect]
     Indication: PROSTATE CANCER
     Dosage: 4 mg, QMO
     Route: 042
     Dates: start: 20080427

REACTIONS (12)
  - Pulmonary embolism [Unknown]
  - Chest pain [Unknown]
  - Prostatic specific antigen increased [Unknown]
  - Epidermal growth factor receptor decreased [None]
  - Red blood cell count decreased [Unknown]
  - Haematocrit decreased [Unknown]
  - Haemoglobin decreased [Unknown]
  - Mean cell volume increased [Unknown]
  - Glomerular filtration rate decreased [Unknown]
  - Blood creatinine increased [Unknown]
  - Dyspnoea [Unknown]
  - Malaise [Unknown]
